FAERS Safety Report 5772382-X (Version None)
Quarter: 2008Q2

REPORT INFORMATION
  Report Type: 
  Country: None (occurrence: None)
  Receive Date: 20080613
  Receipt Date: 20080610
  Transmission Date: 20081010
  Serious: Yes (Other)
  Sender: FDA-Public Use
  Company Number: JP-BRISTOL-MYERS SQUIBB COMPANY-14224695

PATIENT
  Age: 56 Year
  Sex: Male

DRUGS (2)
  1. BRIPLATIN [Suspect]
     Indication: OROPHARYNGEAL CANCER STAGE UNSPECIFIED
     Dosage: 1 DOSAGE FORM= 80-100 MG/M2 INFUSED WEEKLY
     Route: 013
  2. SODIUM THIOSULFATE [Concomitant]
     Route: 042

REACTIONS (1)
  - TUMOUR HAEMORRHAGE [None]
